FAERS Safety Report 5074670-1 (Version None)
Quarter: 2006Q3

REPORT INFORMATION
  Report Type: 
  Country: None (occurrence: None)
  Receive Date: 20060803
  Receipt Date: 20060721
  Transmission Date: 20061208
  Serious: Yes (Other)
  Sender: FDA-Public Use
  Company Number: 2006088168

PATIENT
  Age: 45 Year
  Sex: Male

DRUGS (5)
  1. SERTRALINE [Suspect]
     Indication: DRUG USE FOR UNKNOWN INDICATION
  2. LINEZOLID [Suspect]
     Indication: DRUG USE FOR UNKNOWN INDICATION
  3. TRAZODONE (TRAZODONE) [Suspect]
     Indication: DRUG USE FOR UNKNOWN INDICATION
  4. LITHIUM CARBONATE [Suspect]
     Indication: DRUG USE FOR UNKNOWN INDICATION
  5. BUPROPION HCL [Suspect]
     Indication: DRUG USE FOR UNKNOWN INDICATION

REACTIONS (2)
  - DRUG INTERACTION [None]
  - SEROTONIN SYNDROME [None]
